FAERS Safety Report 20232661 (Version 2)
Quarter: 2022Q1

REPORT INFORMATION
  Report Type: Report from Study
  Country: TR (occurrence: None)
  Receive Date: 20211227
  Receipt Date: 20220101
  Transmission Date: 20220423
  Serious: Yes (Life-Threatening, Hospitalization)
  Sender: FDA-Public Use
  Company Number: TR-ROCHE-2880379

PATIENT
  Age: 3 Year
  Sex: Female
  Weight: 14.68 kg

DRUGS (1)
  1. RISDIPLAM [Suspect]
     Active Substance: RISDIPLAM
     Indication: Spinal muscular atrophy
     Dosage: ON 27/JUL/2021, SHE RECEIVED THE LAST DOSE OF RISDIPLAM PRIOR TO THE EVENT OF PULMONARY INFECTION.
     Route: 048
     Dates: start: 20181109

REACTIONS (2)
  - Asphyxia [Recovered/Resolved with Sequelae]
  - Pneumonia [Recovered/Resolved]

NARRATIVE: CASE EVENT DATE: 20210727
